FAERS Safety Report 17138406 (Version 1)
Quarter: 2019Q4

REPORT INFORMATION
  Report Type: Spontaneous
  Country: US (occurrence: US)
  Receive Date: 20191210
  Receipt Date: 20191210
  Transmission Date: 20200122
  Serious: Yes (Death)
  Sender: FDA-Public Use
  Company Number: None

PATIENT
  Age: 80 Year
  Sex: Male
  Weight: 88.9 kg

DRUGS (12)
  1. ABIRATERONE ACETATE. [Suspect]
     Active Substance: ABIRATERONE ACETATE
     Indication: PROSTATE CANCER
     Route: 048
     Dates: start: 20190412, end: 20190730
  2. CENTRUM SILVER ULTRA MENS [Concomitant]
  3. AMLODIPINE [Concomitant]
     Active Substance: AMLODIPINE BESYLATE
  4. LISINOPRIL 40 MG [Concomitant]
     Active Substance: LISINOPRIL
  5. FINASTERIDE. [Concomitant]
     Active Substance: FINASTERIDE
  6. GLUCOSAMINE COMPLEX 500-400 MG [Concomitant]
  7. ONDANSETRON 4MG [Concomitant]
     Active Substance: ONDANSETRON
  8. PREDNISONE 5MG TABLET [Concomitant]
  9. METFORMIN [Concomitant]
     Active Substance: METFORMIN HYDROCHLORIDE
  10. OXYCODONE 5 MG TABLETS [Concomitant]
  11. ATORVASTATIN 20MG [Concomitant]
     Active Substance: ATORVASTATIN
  12. BICALUTAMIDE 50 MG [Concomitant]
     Active Substance: BICALUTAMIDE

REACTIONS (1)
  - Disease progression [None]

NARRATIVE: CASE EVENT DATE: 20190901
